FAERS Safety Report 7992277-0 (Version None)
Quarter: 2011Q4

REPORT INFORMATION
  Report Type: 
  Country: None (occurrence: None)
  Receive Date: 20111219
  Receipt Date: 20101116
  Transmission Date: 20120403
  Serious: No
  Sender: FDA-Public Use
  Company Number: US-ASTRAZENECA-2007UW01825

PATIENT
  Age: 89 Year
  Sex: Male
  Weight: 54.4 kg

DRUGS (6)
  1. NITRATE [Concomitant]
  2. VALIUM [Concomitant]
  3. ISOSORBIDE DINITRATE [Concomitant]
  4. CRESTOR [Suspect]
     Indication: BLOOD CHOLESTEROL INCREASED
     Route: 048
  5. ASPIRIN [Concomitant]
  6. FELODIPINE [Concomitant]

REACTIONS (3)
  - PAIN [None]
  - WRONG TECHNIQUE IN DRUG USAGE PROCESS [None]
  - HEADACHE [None]
